FAERS Safety Report 17648433 (Version 2)
Quarter: 2020Q2

REPORT INFORMATION
  Report Type: Spontaneous
  Country: JP (occurrence: JP)
  Receive Date: 20200409
  Receipt Date: 20200512
  Transmission Date: 20200713
  Serious: Yes (Life-Threatening, Hospitalization, Other)
  Sender: FDA-Public Use
  Company Number: JP-JNJFOC-20200400028

PATIENT
  Age: 60 Year
  Sex: Male

DRUGS (2)
  1. RISPERDAL [Suspect]
     Active Substance: RISPERIDONE
     Indication: SCHIZOPHRENIA
     Dosage: AT 0.5 MG/DAY, GRADUALLY INCREASING THE DOSE TO 6 MG/ DAY
     Route: 048
     Dates: start: 20130213
  2. RISPERDAL [Suspect]
     Active Substance: RISPERIDONE
     Dosage: AT 0.5 MG/DAY, GRADUALLY INCREASING THE DOSE TO 6 MG/ DAY
     Route: 048
     Dates: start: 2013, end: 20130411

REACTIONS (2)
  - Hypoglycaemic coma [Recovered/Resolved]
  - Fatigue [Recovered/Resolved]

NARRATIVE: CASE EVENT DATE: 20130409
